FAERS Safety Report 8398790-9 (Version None)
Quarter: 2012Q2

REPORT INFORMATION
  Report Type: 
  Country: None (occurrence: None)
  Receive Date: 20120531
  Receipt Date: 20120522
  Transmission Date: 20120825
  Serious: Yes (Other)
  Sender: FDA-Public Use
  Company Number: US-ASTRAZENECA-2009SE13488

PATIENT
  Age: 761 Month
  Sex: Female

DRUGS (7)
  1. COMPLEX VITAMIN [Concomitant]
  2. MELONIN [Concomitant]
     Indication: SLEEP DISORDER
  3. VITAMIN E [Concomitant]
  4. ARIMIDEX [Suspect]
     Indication: BREAST CANCER
     Route: 048
     Dates: start: 20090901
  5. PRAVASTATIN [Interacting]
     Route: 065
  6. SERTARLINE [Concomitant]
     Indication: DEPRESSION
  7. VITAMIN B-12 [Concomitant]

REACTIONS (12)
  - BONE PAIN [None]
  - DRUG INTERACTION [None]
  - BREAST CANCER [None]
  - WEIGHT DECREASED [None]
  - DEPRESSION [None]
  - RASH VESICULAR [None]
  - THERAPEUTIC RESPONSE UNEXPECTED [None]
  - ARTHRALGIA [None]
  - HYPERHIDROSIS [None]
  - MUSCLE SPASMS [None]
  - OEDEMA PERIPHERAL [None]
  - BACK PAIN [None]
